FAERS Safety Report 9271425 (Version 1)
Quarter: 2013Q2

REPORT INFORMATION
  Report Type: Report from Study
  Country: US (occurrence: US)
  Receive Date: 20130506
  Receipt Date: 20130506
  Transmission Date: 20140414
  Serious: No
  Sender: FDA-Public Use
  Company Number: US-VERTEX PHARMACEUTICALS INC-2013-005702

PATIENT
  Age: 64 Year
  Sex: Male

DRUGS (5)
  1. VX-950 (TELAPREVIR) [Suspect]
     Indication: HEPATITIS C
     Dosage: 750 MG, TID
     Route: 048
     Dates: start: 20130412
  2. COPEGUS [Suspect]
     Indication: HEPATITIS C
     Dosage: 2 TABS AM; 3 TABS IN PM
     Dates: start: 20130412
  3. COPEGUS [Suspect]
     Dosage: 2 TABS IN AM; 2 TABS IN PM
  4. PEGASYS [Suspect]
     Indication: HEPATITIS C
     Dosage: 180 ?G, WEEKLY
     Dates: start: 20130412
  5. BLOOD PRESSURE MEDICATION [Concomitant]

REACTIONS (2)
  - Headache [Not Recovered/Not Resolved]
  - Fatigue [Not Recovered/Not Resolved]
